FAERS Safety Report 6184619-6 (Version None)
Quarter: 2009Q2

REPORT INFORMATION
  Report Type: 
  Country: None (occurrence: None)
  Receive Date: 20090508
  Receipt Date: 20090429
  Transmission Date: 20091009
  Serious: Yes (Hospitalization)
  Sender: FDA-Public Use
  Company Number: BR-ABBOTT-09P-020-0570905-00

PATIENT
  Age: 47 Year
  Sex: Female

DRUGS (2)
  1. VALPROATE SODIUM [Suspect]
     Indication: BIPOLAR DISORDER
  2. VALPROATE SODIUM [Suspect]

REACTIONS (2)
  - CEREBRAL ATROPHY [None]
  - HYPERAMMONAEMIC ENCEPHALOPATHY [None]
